FAERS Safety Report 13645934 (Version 1)
Quarter: 2017Q2

REPORT INFORMATION
  Report Type: Spontaneous
  Country: US (occurrence: US)
  Receive Date: 20170612
  Receipt Date: 20170612
  Transmission Date: 20170830
  Serious: Yes (Hospitalization)
  Sender: FDA-Public Use
  Company Number: None

PATIENT
  Age: 59 Year
  Sex: Male
  Weight: 94.6 kg

DRUGS (19)
  1. HARVONI [Suspect]
     Active Substance: LEDIPASVIR\SOFOSBUVIR
     Indication: HEPATITIS C
     Dosage: 90-400MG QD PO
     Route: 048
     Dates: start: 20170318
  2. AUGMENTIN [Concomitant]
     Active Substance: AMOXICILLIN\CLAVULANATE POTASSIUM
  3. ALBUTEROL (PROVENTIL HFA) [Concomitant]
  4. FOLIC ACID (FOLVITE) [Concomitant]
  5. MAGNESIUM OXIDE (MAG-OX) [Concomitant]
  6. THIAMINE. [Concomitant]
     Active Substance: THIAMINE
  7. TRAMADOL. [Concomitant]
     Active Substance: TRAMADOL
  8. ZINC SULFATE [Concomitant]
     Active Substance: ZINC SULFATE\ZINC SULFATE ANHYDROUS
  9. FUROSEMIDE. [Concomitant]
     Active Substance: FUROSEMIDE
  10. LACTULOSE. [Concomitant]
     Active Substance: LACTULOSE
  11. BENZONATATE. [Concomitant]
     Active Substance: BENZONATATE
  12. LORATADINE. [Concomitant]
     Active Substance: LORATADINE
  13. NADOLOL. [Concomitant]
     Active Substance: NADOLOL
  14. RIFAXIMIN [Concomitant]
     Active Substance: RIFAXIMIN
  15. POLYETHYLENE GLYCOL [Concomitant]
     Active Substance: POLYETHYLENE GLYCOLS
  16. ONDANSETRON [Concomitant]
     Active Substance: ONDANSETRON
  17. SPIRONOLACTONE. [Concomitant]
     Active Substance: SPIRONOLACTONE
  18. FLUTICASONE. [Concomitant]
     Active Substance: FLUTICASONE
  19. PRILOSEC [Concomitant]
     Active Substance: OMEPRAZOLE MAGNESIUM

REACTIONS (10)
  - Mastication disorder [None]
  - Hepatic encephalopathy [None]
  - Pneumonia [None]
  - Aspiration [None]
  - Cough [None]
  - Lung consolidation [None]
  - Vomiting [None]
  - Sleep apnoea syndrome [None]
  - Hypoxia [None]
  - Bacterial infection [None]

NARRATIVE: CASE EVENT DATE: 20170408
